APPROVED DRUG PRODUCT: QUETIAPINE FUMARATE
Active Ingredient: QUETIAPINE FUMARATE
Strength: EQ 150MG BASE
Dosage Form/Route: TABLET, EXTENDED RELEASE;ORAL
Application: A090482 | Product #002
Applicant: PH HEALTH LTD
Approved: May 9, 2017 | RLD: No | RS: No | Type: DISCN